FAERS Safety Report 13543320 (Version 6)
Quarter: 2020Q2

REPORT INFORMATION
  Report Type: Report from Study
  Country: CA (occurrence: CA)
  Receive Date: 20170514
  Receipt Date: 20200409
  Transmission Date: 20200713
  Serious: Yes (Death, Other)
  Sender: FDA-Public Use
  Company Number: PHHY2016CA160615

PATIENT
  Sex: Female

DRUGS (13)
  1. ATIVAN [Concomitant]
     Active Substance: LORAZEPAM
     Indication: PRODUCT USED FOR UNKNOWN INDICATION
     Dosage: 2 DF, QHS (AT BED TIME)
     Route: 060
  2. MOXIFLOXACIN HCL [Concomitant]
     Active Substance: MOXIFLOXACIN
     Indication: PRODUCT USED FOR UNKNOWN INDICATION
     Dosage: 1 DF, QD
     Route: 048
  3. REVOLADE [Suspect]
     Active Substance: ELTROMBOPAG
     Indication: APLASTIC ANAEMIA
     Dosage: 25 MG, QD
     Route: 048
     Dates: start: 20160915
  4. ATIVAN [Concomitant]
     Active Substance: LORAZEPAM
     Dosage: 1 DF, Q4H
     Route: 060
  5. REVOLADE [Suspect]
     Active Substance: ELTROMBOPAG
     Dosage: 25 MG, QOD
     Route: 048
  6. ZOPLICONE [Concomitant]
     Active Substance: ZOPICLONE
     Indication: PRODUCT USED FOR UNKNOWN INDICATION
     Dosage: 5 MG, QD (AT BEDTIME FOR 28 DAYS)
     Route: 065
  7. REVOLADE [Suspect]
     Active Substance: ELTROMBOPAG
     Dosage: 25 MG, QD
     Route: 048
  8. REVOLADE [Suspect]
     Active Substance: ELTROMBOPAG
     Dosage: 50 MG, QD
     Route: 048
  9. ATENOLOL. [Concomitant]
     Active Substance: ATENOLOL
     Indication: PRODUCT USED FOR UNKNOWN INDICATION
     Dosage: 1 DF, QD
     Route: 065
  10. LAMIVUDINE. [Concomitant]
     Active Substance: LAMIVUDINE
     Indication: PRODUCT USED FOR UNKNOWN INDICATION
     Dosage: 1 DF, QD (30 TABLETS)
     Route: 065
  11. REVOLADE [Suspect]
     Active Substance: ELTROMBOPAG
     Dosage: 25 MG, QHS
     Route: 048
  12. REVOLADE [Suspect]
     Active Substance: ELTROMBOPAG
     Dosage: 25 MG, UNK
     Route: 048
     Dates: start: 20190719
  13. CYCLOSPORINE. [Suspect]
     Active Substance: CYCLOSPORINE
     Indication: APLASTIC ANAEMIA
     Dosage: UNK
     Route: 065

REACTIONS (15)
  - Platelet count decreased [Recovering/Resolving]
  - Red blood cell count decreased [Unknown]
  - Mean cell volume increased [Unknown]
  - Lung neoplasm malignant [Unknown]
  - Drug intolerance [Unknown]
  - Lymphocyte count abnormal [Unknown]
  - Death [Fatal]
  - Haematocrit decreased [Unknown]
  - Neutrophil count decreased [Unknown]
  - White blood cell count decreased [Unknown]
  - Pneumonia [Unknown]
  - Haemoglobin decreased [Unknown]
  - Polychromasia [Unknown]
  - Asthenia [Unknown]
  - Incorrect dose administered [Unknown]
